FAERS Safety Report 5190598-0 (Version None)
Quarter: 2006Q4

REPORT INFORMATION
  Report Type: 
  Country: None (occurrence: None)
  Receive Date: 20061222
  Receipt Date: 20060911
  Transmission Date: 20070319
  Serious: No
  Sender: FDA-Public Use
  Company Number: US-BRISTOL-MYERS SQUIBB COMPANY-13504881

PATIENT
  Age: 80 Year
  Sex: Female
  Weight: 56 kg

DRUGS (6)
  1. ORENCIA [Suspect]
     Indication: RHEUMATOID ARTHRITIS
     Dates: start: 20060815
  2. BRIMONIDINE TARTRATE [Concomitant]
     Route: 047
  3. TIMOLOL MALEATE [Concomitant]
  4. TIMOLOL MALEATE [Concomitant]
  5. LISINOPRIL [Concomitant]
  6. TYLENOL W/ CODEINE NO. 3 [Concomitant]

REACTIONS (3)
  - ORAL PAIN [None]
  - STOMATITIS [None]
  - TOOTH DISCOLOURATION [None]
